FAERS Safety Report 8296170-8 (Version None)
Quarter: 2012Q2

REPORT INFORMATION
  Report Type: 
  Country: None (occurrence: None)
  Receive Date: 20120418
  Receipt Date: 20120411
  Transmission Date: 20120825
  Serious: Yes (Other)
  Sender: FDA-Public Use
  Company Number: US-ALEXION-A201200626

PATIENT
  Age: 29 Year
  Sex: Female
  Weight: 89 kg

DRUGS (5)
  1. SOLIRIS [Suspect]
     Indication: PRE-ECLAMPSIA
  2. BETAMETHASONE [Concomitant]
     Indication: PRODUCT USED FOR UNKNOWN INDICATION
     Dosage: UNK
  3. LABETALOL HCL [Concomitant]
     Indication: PRE-ECLAMPSIA
     Dosage: 600 MG, TID
     Route: 048
     Dates: end: 20120406
  4. SOLIRIS [Suspect]
     Indication: HELLP SYNDROME
     Dosage: 1200 MG, SINGLE
     Route: 042
     Dates: start: 20120330, end: 20120330
  5. ANESTHETICS, GENERAL [Concomitant]
     Indication: CAESAREAN SECTION
     Dosage: UNK, SPINAL
     Dates: start: 20120402, end: 20120401

REACTIONS (5)
  - CALCINOSIS [None]
  - HYPERTENSION [None]
  - PREGNANCY [None]
  - PLACENTAL DISORDER [None]
  - PLACENTAL INFARCTION [None]
